FAERS Safety Report 22255950 (Version 1)
Quarter: 2023Q2

REPORT INFORMATION
  Report Type: Report from Study
  Country: NL (occurrence: NL)
  Receive Date: 20230426
  Receipt Date: 20230426
  Transmission Date: 20230722
  Serious: Yes (Death, Hospitalization, Other)
  Sender: FDA-Public Use
  Company Number: NL-AstraZeneca-2023A048397

PATIENT
  Sex: Female
  Weight: 8.5 kg

DRUGS (1)
  1. SYNAGIS [Suspect]
     Active Substance: PALIVIZUMAB
     Indication: Product used for unknown indication
     Dosage: ONCE A MONTH
     Route: 030
     Dates: start: 20230103

REACTIONS (3)
  - Death [Fatal]
  - Viral infection [Not Recovered/Not Resolved]
  - General physical condition abnormal [Not Recovered/Not Resolved]
